FAERS Safety Report 8848049 (Version 2)
Quarter: 2013Q2

REPORT INFORMATION
  Report Type: Spontaneous
  Country: US (occurrence: US)
  Receive Date: 20121018
  Receipt Date: 20130510
  Transmission Date: 20140414
  Serious: Yes (Hospitalization)
  Sender: FDA-Public Use
  Company Number: US-BAYER-2012-107518

PATIENT
  Age: 21 Year
  Sex: Female
  Weight: 61.22 kg

DRUGS (6)
  1. YASMIN [Suspect]
     Dosage: UNK
     Dates: start: 200307, end: 20031024
  2. VALTREX [Concomitant]
  3. VICODIN [Concomitant]
  4. TYLENOL [Concomitant]
     Dosage: UNK UNK, PRN
  5. PREDNISONE [Concomitant]
  6. ALEVE [Concomitant]

REACTIONS (7)
  - Pulmonary embolism [Recovered/Resolved]
  - Injury [Recovered/Resolved]
  - Pain [Recovered/Resolved]
  - Emotional distress [None]
  - General physical health deterioration [Recovered/Resolved]
  - Anxiety [None]
  - Pain [None]
